FAERS Safety Report 25925319 (Version 1)
Quarter: 2025Q4

REPORT INFORMATION
  Report Type: Spontaneous
  Country: US (occurrence: US)
  Receive Date: 20251015
  Receipt Date: 20251015
  Transmission Date: 20260118
  Serious: Yes (Hospitalization)
  Sender: Medicap Laboratories
  Company Number: US-Medicap-000081

PATIENT
  Age: 2 Month
  Sex: Male

DRUGS (1)
  1. QUETIAPINE [Suspect]
     Active Substance: QUETIAPINE
     Indication: Delirium
     Route: 065

REACTIONS (1)
  - Hypertriglyceridaemia [Recovering/Resolving]
